FAERS Safety Report 9541588 (Version 1)
Quarter: 2013Q3

REPORT INFORMATION
  Report Type: Spontaneous
  Country: US (occurrence: None)
  Receive Date: 20130919
  Receipt Date: 20130919
  Transmission Date: 20140515
  Serious: Yes (Other)
  Sender: FDA-Public Use
  Company Number: None

PATIENT
  Age: 75 Year
  Sex: Male

DRUGS (9)
  1. AFINITOR [Suspect]
     Dosage: 5 MG DAILY ORAL
     Route: 048
     Dates: start: 20130110, end: 20130812
  2. ASA, [Concomitant]
  3. CRESTOR, [Concomitant]
  4. HYDROCHLORTHIAZIDE, [Concomitant]
  5. METOPROLOL, [Concomitant]
  6. XALATAN, [Concomitant]
  7. TIMOLOL, [Concomitant]
  8. CREON, [Concomitant]
  9. PREDNISONE [Concomitant]

REACTIONS (1)
  - Pneumonia [None]
